FAERS Safety Report 15801200 (Version 1)
Quarter: 2019Q1

REPORT INFORMATION
  Report Type: Spontaneous
  Country: US (occurrence: US)
  Receive Date: 20190109
  Receipt Date: 20190109
  Transmission Date: 20190417
  Serious: Yes (Hospitalization)
  Sender: FDA-Public Use
  Company Number: US-CIPLA LTD.-2019US00029

PATIENT

DRUGS (2)
  1. WARFARIN [Suspect]
     Active Substance: WARFARIN
     Indication: ANTICOAGULANT THERAPY
     Dosage: UNK
     Route: 065
  2. PAZOPANIB [Concomitant]
     Active Substance: PAZOPANIB
     Indication: RENAL CELL CARCINOMA STAGE IV
     Dosage: UNK

REACTIONS (1)
  - Pulmonary embolism [Unknown]
